FAERS Safety Report 19111462 (Version 3)
Quarter: 2021Q2

REPORT INFORMATION
  Report Type: Spontaneous
  Country: IN (occurrence: IN)
  Receive Date: 20210408
  Receipt Date: 20210604
  Transmission Date: 20210717
  Serious: Yes (Hospitalization)
  Sender: FDA-Public Use
  Company Number: IN-PFIZER INC-2021104985

PATIENT
  Age: 58 Year
  Sex: Female

DRUGS (12)
  1. PALBACE [Suspect]
     Active Substance: PALBOCICLIB
     Indication: BREAST CANCER METASTATIC
     Dosage: 125 MG, 1X/DAY
     Route: 048
     Dates: start: 20201219
  2. ELIXIR NEOGADINE [Concomitant]
     Dosage: 2 TSP , 2X/DAY(BD)
  3. EMESET [Concomitant]
     Active Substance: ONDANSETRON HYDROCHLORIDE
     Dosage: (1?0?1) X 7 DAYS
  4. HEXIDINE [Concomitant]
     Active Substance: CHLORHEXIDINE
     Dosage: UNK, 4X/DAY
  5. FULVESTRANT. [Concomitant]
     Active Substance: FULVESTRANT
     Dosage: 500 MG, STAT
     Route: 030
  6. SHELCAL [CALCIUM CARBONATE;COLECALCIFEROL] [Concomitant]
     Dosage: UNK, 2X/DAY((1?0?1)X 28 DAYS)
  7. PAN D [DOMPERIDONE;PANTOPRAZOLE SODIUM SESQUIHYDRATE] [Concomitant]
     Active Substance: DOMPERIDONE\PANTOPRAZOLE SODIUM
     Dosage: UNK, 1X/DAY(( 1?0?0) X 28 DAYS)
  8. SUCRALFATE. [Concomitant]
     Active Substance: SUCRALFATE
     Dosage: 2 TSP, 2X/DAY(BD)
  9. PAN MPS O [Concomitant]
     Dosage: 2 TSP , 2X/DAY(BD)
  10. PALBACE [Suspect]
     Active Substance: PALBOCICLIB
     Dosage: 125 MG, CYCLIC (1X/DAY X 21 DAYS)
     Dates: start: 20210220
  11. BERON [Concomitant]
     Dosage: 2 TSP, 2X/DAY(BD)
  12. HEPATOGLOBINE [Concomitant]
     Dosage: 2 TSP, 2X/DAY(BD)

REACTIONS (2)
  - Malaise [Unknown]
  - Dyspepsia [Unknown]
